FAERS Safety Report 18210516 (Version 1)
Quarter: 2020Q3

REPORT INFORMATION
  Report Type: Spontaneous
  Country: US (occurrence: US)
  Receive Date: 20200829
  Receipt Date: 20200829
  Transmission Date: 20201103
  Serious: No
  Sender: FDA-Public Use
  Company Number: US-ENDO PHARMACEUTICALS INC-2020-003380

PATIENT
  Sex: Female
  Weight: 106.5 kg

DRUGS (3)
  1. TRAMADOL. [Concomitant]
     Active Substance: TRAMADOL
     Indication: PAIN
  2. PREDNISONE. [Suspect]
     Active Substance: PREDNISONE
     Indication: ARTHRITIS
     Dosage: 5 MG, DAILY
     Route: 048
  3. PREDNISONE. [Suspect]
     Active Substance: PREDNISONE
     Dosage: 10 MG, DAILY
     Route: 048

REACTIONS (2)
  - Drug ineffective [Unknown]
  - Arthritis [Not Recovered/Not Resolved]

NARRATIVE: CASE EVENT DATE: 2020
